FAERS Safety Report 15434813 (Version 1)
Quarter: 2018Q3

REPORT INFORMATION
  Report Type: Spontaneous
  Country: US (occurrence: US)
  Receive Date: 20180922
  Receipt Date: 20180922
  Transmission Date: 20181010
  Serious: Yes (Other)
  Sender: FDA-Public Use
  Company Number: None

PATIENT
  Age: 54 Year
  Sex: Female
  Weight: 67.5 kg

DRUGS (2)
  1. MIRTAZIPINE [Suspect]
     Active Substance: MIRTAZAPINE
     Indication: ANXIETY
  2. MIRTAZIPINE [Suspect]
     Active Substance: MIRTAZAPINE
     Indication: DEPRESSION
     Dosage: ?          QUANTITY:1 TABLET(S);?
     Route: 048

REACTIONS (5)
  - Depression [None]
  - Anxiety [None]
  - Inability to afford medication [None]
  - Drug ineffective [None]
  - Product substitution issue [None]
